FAERS Safety Report 9957788 (Version 1)
Quarter: 2014Q1

REPORT INFORMATION
  Report Type: Report from Study
  Country: US (occurrence: US)
  Receive Date: 20140304
  Receipt Date: 20140304
  Transmission Date: 20141002
  Serious: No
  Sender: FDA-Public Use
  Company Number: US-ABBVIE-13P-163-1093588-00

PATIENT
  Age: 44 Year
  Sex: Male

DRUGS (6)
  1. HUMIRA [Suspect]
     Indication: PSORIATIC ARTHROPATHY
     Dosage: 1ST AND 15TH OF EACH MONTH
  2. METFORMIN [Concomitant]
     Indication: DIABETES MELLITUS
  3. GLIPIZIDE [Concomitant]
     Indication: DIABETES MELLITUS
  4. VYTORIN [Concomitant]
     Indication: BLOOD CHOLESTEROL
  5. ASA [Concomitant]
     Indication: MYOCARDIAL INFARCTION
  6. HYDROCODONE [Concomitant]
     Indication: MYOCARDIAL INFARCTION

REACTIONS (1)
  - Arthralgia [Recovering/Resolving]
